FAERS Safety Report 5069018-2 (Version None)
Quarter: 2006Q3

REPORT INFORMATION
  Report Type: 
  Country: None (occurrence: None)
  Receive Date: 20060728
  Receipt Date: 20060720
  Transmission Date: 20061208
  Serious: No
  Sender: FDA-Public Use
  Company Number: FR200607003706

PATIENT
  Age: 30 Year
  Sex: Male

DRUGS (4)
  1. ZYPREXA [Suspect]
     Indication: SCHIZOPHRENIA
     Dosage: SEE IMAGE
     Route: 048
     Dates: start: 20040101, end: 20050101
  2. ZYPREXA [Suspect]
     Indication: SCHIZOPHRENIA
     Dosage: SEE IMAGE
     Route: 048
     Dates: start: 20060101
  3. VALPROATE SODIUM [Concomitant]
  4. TERCIAN (CYAMEMAZINE) [Concomitant]

REACTIONS (1)
  - NEUTROPENIA [None]
